FAERS Safety Report 23078765 (Version 1)
Quarter: 2023Q4

REPORT INFORMATION
  Report Type: Spontaneous
  Country: US (occurrence: None)
  Receive Date: 20231017
  Receipt Date: 20231017
  Transmission Date: 20240110
  Serious: Yes (Hospitalization)
  Sender: FDA-Public Use
  Company Number: None

PATIENT
  Age: 54 Year
  Sex: Female
  Weight: 60.75 kg

DRUGS (1)
  1. OCTAGAM IMMUNE GLOBULIN (HUMAN) [Suspect]
     Active Substance: HUMAN IMMUNOGLOBULIN G
     Indication: Polymyositis
     Dosage: FREQUENCY : DAILY;?
     Route: 042
     Dates: start: 20230709, end: 20230709

REACTIONS (6)
  - Headache [None]
  - Vomiting [None]
  - Rash [None]
  - Asthenia [None]
  - Diarrhoea [None]
  - Infusion related reaction [None]

NARRATIVE: CASE EVENT DATE: 20230710
